FAERS Safety Report 23978082 (Version 1)
Quarter: 2024Q2

REPORT INFORMATION
  Report Type: Report from Study
  Country: ES (occurrence: ES)
  Receive Date: 20240614
  Receipt Date: 20240614
  Transmission Date: 20240716
  Serious: Yes (Death, Other)
  Sender: FDA-Public Use
  Company Number: ES-ELI_LILLY_AND_COMPANY-ES202404014583

PATIENT
  Age: 63 Year
  Sex: Female

DRUGS (4)
  1. LETROZOLE [Suspect]
     Active Substance: LETROZOLE
     Indication: Product used for unknown indication
     Dosage: UNK UNK, UNKNOWN
     Route: 065
  2. TAXOL [Suspect]
     Active Substance: PACLITAXEL
     Indication: Product used for unknown indication
     Dosage: UNK UNK, UNKNOWN
     Route: 065
  3. ABEMACICLIB [Suspect]
     Active Substance: ABEMACICLIB
     Indication: Breast cancer
     Dosage: 150 MILLIGRAM
     Route: 048
  4. ABEMACICLIB [Suspect]
     Active Substance: ABEMACICLIB
     Dosage: 150 MILLIGRAM
     Route: 048
     Dates: start: 20240326, end: 20240423

REACTIONS (37)
  - Malignant neoplasm progression [Fatal]
  - Neuropathy peripheral [Unknown]
  - Carcinoembryonic antigen increased [Recovering/Resolving]
  - Red blood cell count increased [Recovering/Resolving]
  - Oropharyngeal pain [Recovered/Resolved]
  - Dehydration [Recovering/Resolving]
  - Grip strength decreased [Recovering/Resolving]
  - Dysphagia [Recovered/Resolved]
  - Gait disturbance [Unknown]
  - Feeling abnormal [Recovering/Resolving]
  - Dairy intolerance [Recovering/Resolving]
  - Hypotension [Recovering/Resolving]
  - Blood uric acid increased [Recovering/Resolving]
  - Blood creatinine increased [Recovering/Resolving]
  - Discomfort [Unknown]
  - Glomerular filtration rate increased [Recovering/Resolving]
  - Fall [Unknown]
  - Red cell distribution width increased [Recovering/Resolving]
  - Influenza like illness [Recovered/Resolved]
  - Carbohydrate antigen 15-3 increased [Recovering/Resolving]
  - Neutrophil count decreased [Recovering/Resolving]
  - Taste disorder [Recovering/Resolving]
  - Memory impairment [Recovering/Resolving]
  - Somnolence [Recovering/Resolving]
  - White blood cell count decreased [Recovering/Resolving]
  - Headache [Recovered/Resolved]
  - Asthenia [Recovering/Resolving]
  - Malaise [Recovering/Resolving]
  - Diarrhoea [Recovered/Resolved]
  - Dyspepsia [Recovered/Resolved]
  - Fatigue [Recovering/Resolving]
  - Dizziness [Recovering/Resolving]
  - Vomiting [Recovered/Resolved]
  - Blood cholesterol increased [Recovering/Resolving]
  - Hyperhidrosis [Recovering/Resolving]
  - Abdominal pain [Recovering/Resolving]
  - Nausea [Recovered/Resolved]

NARRATIVE: CASE EVENT DATE: 20240405
